FAERS Safety Report 7866906-6 (Version None)
Quarter: 2011Q4

REPORT INFORMATION
  Report Type: 
  Country: None (occurrence: None)
  Receive Date: 20111028
  Receipt Date: 20111021
  Transmission Date: 20120403
  Serious: Yes (Other)
  Sender: FDA-Public Use
  Company Number: US-ABBOTT-11P-163-0868095-00

PATIENT
  Age: 52 Year
  Sex: Female

DRUGS (1)
  1. VICODIN [Suspect]
     Indication: PRODUCT USED FOR UNKNOWN INDICATION
     Dosage: ONE DOSE
     Dates: start: 19860101

REACTIONS (3)
  - ANAPHYLACTIC REACTION [None]
  - CHOKING SENSATION [None]
  - DYSPNOEA [None]
